FAERS Safety Report 7209642-1 (Version None)
Quarter: 2011Q1

REPORT INFORMATION
  Report Type: 
  Country: None (occurrence: None)
  Receive Date: 20110104
  Receipt Date: 20101221
  Transmission Date: 20110831
  Serious: Yes (Other)
  Sender: FDA-Public Use
  Company Number: US-JNJFOC-20090701977

PATIENT
  Age: 24 Year
  Sex: Female

DRUGS (3)
  1. COCAINE [Suspect]
     Indication: ILL-DEFINED DISORDER
     Route: 065
  2. ACETAMINOPHEN [Suspect]
     Route: 048
  3. ACETAMINOPHEN [Suspect]
     Indication: TOOTHACHE
     Dosage: 12-50 TABLETS
     Route: 048

REACTIONS (7)
  - THROMBOCYTOPENIA [None]
  - DRUG EXPOSURE DURING PREGNANCY [None]
  - LIVER FUNCTION TEST ABNORMAL [None]
  - RENAL FAILURE [None]
  - PREMATURE LABOUR [None]
  - OVERDOSE [None]
  - COAGULOPATHY [None]
